FAERS Safety Report 22342061 (Version 1)
Quarter: 2023Q2

REPORT INFORMATION
  Report Type: Report from Study
  Country: US (occurrence: None)
  Receive Date: 20230519
  Receipt Date: 20230519
  Transmission Date: 20230721
  Serious: Yes (Death)
  Sender: FDA-Public Use
  Company Number: 2023A114106

PATIENT
  Age: 25647 Day
  Sex: Female

DRUGS (5)
  1. TAGRISSO [Suspect]
     Active Substance: OSIMERTINIB
     Indication: Non-small cell lung cancer
     Route: 048
     Dates: start: 20181204
  2. TESSALON [Concomitant]
     Active Substance: BENZONATATE
  3. FOLIC ACID\IRON [Concomitant]
     Active Substance: FOLIC ACID\IRON
  4. HERBALS\TURMERIC [Concomitant]
     Active Substance: HERBALS\TURMERIC
  5. CANNABIDIOL\HERBALS [Concomitant]
     Active Substance: CANNABIDIOL\HERBALS

REACTIONS (1)
  - Death [Fatal]

NARRATIVE: CASE EVENT DATE: 20230429
